FAERS Safety Report 5965945-X (Version None)
Quarter: 2008Q4

REPORT INFORMATION
  Report Type: 
  Country: None (occurrence: None)
  Receive Date: 20081125
  Receipt Date: 20081114
  Transmission Date: 20090506
  Serious: Yes (Other)
  Sender: FDA-Public Use
  Company Number: CH-ELI_LILLY_AND_COMPANY-CH200811004477

PATIENT
  Age: 71 Year
  Sex: Male

DRUGS (10)
  1. ALIMTA [Suspect]
     Dosage: 500 MG/M2, DAY 1 EVERY 21 DAYS
     Route: 042
     Dates: start: 20050101, end: 20050101
  2. ALIMTA [Suspect]
     Dosage: 400 MG/M2, DAY 1 REPEATED EVERY 3 WEEKS
     Route: 042
     Dates: start: 20060901, end: 20070101
  3. CORTICOSTEROID NOS [Concomitant]
     Dosage: UNK, UNKNOWN
     Route: 065
  4. CORTICOSTEROID NOS [Concomitant]
     Dosage: UNK, UNKNOWN
     Route: 065
  5. VITAMIN B-12 [Concomitant]
     Dosage: UNK, UNKNOWN
     Route: 065
  6. VITAMIN B-12 [Concomitant]
     Dosage: UNK, UNKNOWN
     Route: 065
  7. FOLIC ACID [Concomitant]
     Dosage: UNK, UNKNOWN
     Route: 065
  8. FOLIC ACID [Concomitant]
     Dosage: UNK, UNKNOWN
     Route: 065
  9. THERAPEUTIC RADIOPHARMACEUTICALS [Concomitant]
     Indication: PLEURAL MESOTHELIOMA MALIGNANT
     Dosage: 21 GY IN THREE FRACTIONS OF 7 GY
     Route: 065
  10. THERAPEUTIC RADIOPHARMACEUTICALS [Concomitant]
     Dosage: 21 GY IN THREE FRACTIONS OF 7 GY WITH X-RAYS (160 KY).

REACTIONS (3)
  - MALIGNANT NEOPLASM PROGRESSION [None]
  - RECALL PHENOMENON [None]
  - RESPIRATORY DISTRESS [None]
